FAERS Safety Report 20785168 (Version 1)
Quarter: 2022Q2

REPORT INFORMATION
  Report Type: Spontaneous
  Country: US (occurrence: US)
  Receive Date: 20220504
  Receipt Date: 20220504
  Transmission Date: 20220721
  Serious: No
  Sender: FDA-Public Use
  Company Number: US-PFIZER INC-202101770673

PATIENT
  Age: 62 Year
  Sex: Male

DRUGS (1)
  1. XELJANZ [Suspect]
     Active Substance: TOFACITINIB CITRATE
     Dosage: TAKING ONE TABLET A DAY INSTEAD OF TWO
     Dates: start: 202111

REACTIONS (3)
  - Intentional product misuse [Unknown]
  - Nausea [Unknown]
  - Vomiting [Unknown]

NARRATIVE: CASE EVENT DATE: 20210101
